FAERS Safety Report 10157618 (Version 2)
Quarter: 2014Q2

REPORT INFORMATION
  Report Type: Spontaneous
  Country: US (occurrence: US)
  Receive Date: 20140507
  Receipt Date: 20140613
  Transmission Date: 20141212
  Serious: Yes (Other)
  Sender: FDA-Public Use
  Company Number: US-PFIZER INC-2014125231

PATIENT
  Age: 58 Year
  Sex: Female
  Weight: 90.7 kg

DRUGS (4)
  1. LIPITOR [Suspect]
     Indication: LOW DENSITY LIPOPROTEIN INCREASED
     Dosage: 10 MG, UNK
     Route: 048
     Dates: start: 200710
  2. LIPITOR [Suspect]
     Indication: CARDIOVASCULAR EVENT PROPHYLAXIS
     Dosage: 20 MG, UNK
  3. LIPITOR [Suspect]
     Dosage: 40 MG, UNK
  4. LIPITOR [Suspect]
     Dosage: 80 MG, UNK
     Dates: end: 20120413

REACTIONS (1)
  - Type 2 diabetes mellitus [Not Recovered/Not Resolved]
